FAERS Safety Report 16843779 (Version 1)
Quarter: 2019Q3

REPORT INFORMATION
  Report Type: Spontaneous
  Country: US (occurrence: US)
  Receive Date: 20190802
  Receipt Date: 20190802
  Transmission Date: 20191005
  Serious: Yes (Hospitalization)
  Sender: FDA-Public Use
  Company Number: None

PATIENT
  Age: 49 Year
  Sex: Male

DRUGS (4)
  1. NORMAL SALINE [Concomitant]
     Active Substance: SODIUM CHLORIDE
  2. OXYMETAZOLINE [Concomitant]
     Active Substance: OXYMETAZOLINE
  3. FENTANYL. [Suspect]
     Active Substance: FENTANYL
     Indication: PAIN
     Route: 042
     Dates: start: 20190325, end: 20190325
  4. LEVOTHYROXINE. [Concomitant]
     Active Substance: LEVOTHYROXINE

REACTIONS (3)
  - Blood pressure decreased [None]
  - Pharyngeal swelling [None]
  - Dyspnoea [None]

NARRATIVE: CASE EVENT DATE: 20190325
